FAERS Safety Report 7262291-1 (Version None)
Quarter: 2011Q1

REPORT INFORMATION
  Report Type: 
  Country: None (occurrence: None)
  Receive Date: 20110119
  Receipt Date: 20110105
  Transmission Date: 20110831
  Serious: Yes (Death)
  Sender: FDA-Public Use
  Company Number: JPI-P-013164

PATIENT
  Age: 28 Year
  Sex: Female
  Weight: 74.8435 kg

DRUGS (7)
  1. DULOXETINE HYDROCHLORIDE [Suspect]
     Indication: FIBROMYALGIA
     Dosage: 90 MG (90 MG, 1 IN 1 D)
     Dates: start: 20100301, end: 20101124
  2. NORTRIPTYLINE [Suspect]
     Indication: PRODUCT USED FOR UNKNOWN INDICATION
     Dosage: 10 MG (10 MG,1 IN 1 D)
  3. RIZATRIPTAN BENZOATE [Concomitant]
  4. XYREM [Suspect]
     Indication: NARCOLEPSY
     Dosage: 4.5 GM (3.35 GM,2 IN 1 D)
     Dates: start: 20100628, end: 20100804
  5. VENLAFAXINE HYDROCHLORIDE [Suspect]
     Indication: FIBROMYALGIA
     Dosage: 10 MG (10 MG,1 IN 1D)
     Dates: start: 20101126
  6. EXCEDRIN (MIGRAINE) [Concomitant]
  7. NAPROXEN [Concomitant]

REACTIONS (14)
  - SOMNOLENCE [None]
  - MYALGIA [None]
  - WEIGHT DECREASED [None]
  - NEPHROLITHIASIS [None]
  - NAUSEA [None]
  - CARDIAC DISORDER [None]
  - CHILLS [None]
  - MALAISE [None]
  - HYPERTENSION [None]
  - HEADACHE [None]
  - VOMITING [None]
  - SLEEP APNOEA SYNDROME [None]
  - CHEST PAIN [None]
  - MIDDLE INSOMNIA [None]
